FAERS Safety Report 5144667-1 (Version None)
Quarter: 2006Q4

REPORT INFORMATION
  Report Type: 
  Country: None (occurrence: None)
  Receive Date: 20061031
  Receipt Date: 20061026
  Transmission Date: 20070319
  Serious: Yes (Hospitalization)
  Sender: FDA-Public Use
  Company Number: 2006SP004376

PATIENT

DRUGS (2)
  1. TEMODAL [Suspect]
     Indication: METASTASES TO CENTRAL NERVOUS SYSTEM
  2. CISPLATIN [Concomitant]

REACTIONS (2)
  - FEBRILE BONE MARROW APLASIA [None]
  - GENERAL PHYSICAL HEALTH DETERIORATION [None]
